FAERS Safety Report 15588044 (Version 2)
Quarter: 2018Q4

REPORT INFORMATION
  Report Type: Report from Study
  Country: US (occurrence: US)
  Receive Date: 20181105
  Receipt Date: 20181203
  Transmission Date: 20190205
  Serious: Yes (Hospitalization)
  Sender: FDA-Public Use
  Company Number: US-SEATTLE GENETICS-2018SGN02561

PATIENT
  Sex: Male

DRUGS (1)
  1. BRENTUXIMAB VEDOTIN [Suspect]
     Active Substance: BRENTUXIMAB VEDOTIN
     Indication: HODGKIN^S DISEASE
     Route: 065

REACTIONS (10)
  - Vomiting [Unknown]
  - White blood cell count decreased [Unknown]
  - Pain [Unknown]
  - Unevaluable event [Unknown]
  - Candida infection [Unknown]
  - Nausea [Unknown]
  - Abdominal distension [Unknown]
  - Pneumonia aspiration [Unknown]
  - Malaise [Unknown]
  - Constipation [Unknown]
